FAERS Safety Report 10699093 (Version 13)
Quarter: 2017Q2

REPORT INFORMATION
  Report Type: Report from Study
  Country: US (occurrence: US)
  Receive Date: 20150108
  Receipt Date: 20170629
  Transmission Date: 20170829
  Serious: Yes (Life-Threatening, Hospitalization, Other)
  Sender: FDA-Public Use
  Company Number: US-ALEXION PHARMACEUTICALS INC-A201500001

PATIENT
  Age: 18 Year
  Sex: Female

DRUGS (6)
  1. SOLIRIS [Suspect]
     Active Substance: ECULIZUMAB
     Dosage: 900 MG, UNK
     Route: 042
  2. SOLIRIS [Suspect]
     Active Substance: ECULIZUMAB
     Dosage: 1200 MG, Q2W
     Route: 042
  3. FOLATE [Concomitant]
     Active Substance: FOLATE SODIUM
     Indication: PRODUCT USED FOR UNKNOWN INDICATION
     Route: 065
  4. SOLIRIS [Suspect]
     Active Substance: ECULIZUMAB
     Indication: PAROXYSMAL NOCTURNAL HAEMOGLOBINURIA
     Dosage: UNK
     Route: 042
  5. HYDROCORTISONE. [Concomitant]
     Active Substance: HYDROCORTISONE
     Indication: PROPHYLAXIS
  6. VITAMIN B12 [Concomitant]
     Active Substance: CYANOCOBALAMIN
     Indication: PRODUCT USED FOR UNKNOWN INDICATION
     Route: 065

REACTIONS (14)
  - Meningococcal sepsis [Recovered/Resolved]
  - Limb discomfort [Unknown]
  - Fatigue [Unknown]
  - Meningitis bacterial [Recovered/Resolved]
  - Haemoglobin abnormal [Recovering/Resolving]
  - Petechiae [Recovering/Resolving]
  - Neutropenia [Not Recovered/Not Resolved]
  - Depression [Unknown]
  - Conjunctival haemorrhage [Unknown]
  - Haemolysis [Unknown]
  - Incorrect dose administered [Not Recovered/Not Resolved]
  - Multiple organ dysfunction syndrome [Not Recovered/Not Resolved]
  - Hypoaesthesia [Unknown]
  - Jaundice [Unknown]

NARRATIVE: CASE EVENT DATE: 20150101
